FAERS Safety Report 5428565-1 (Version None)
Quarter: 2007Q3

REPORT INFORMATION
  Report Type: 
  Country: None (occurrence: None)
  Receive Date: 20070824
  Receipt Date: 20070817
  Transmission Date: 20080115
  Serious: Yes (Hospitalization, Other)
  Sender: FDA-Public Use
  Company Number: 2007SP016609

PATIENT
  Age: 46 Year
  Sex: Female

DRUGS (2)
  1. PEG-INTRON [Suspect]
     Indication: HEPATITIS C
     Dosage: ;SC
     Route: 058
     Dates: start: 20061205, end: 20070311
  2. RIBAVIRIN [Suspect]
     Indication: HEPATITIS C
     Dosage: ;PO
     Route: 048
     Dates: start: 20061205, end: 20070311

REACTIONS (6)
  - AMNESIA [None]
  - BLOOD PRESSURE INCREASED [None]
  - COMA [None]
  - CONVULSION [None]
  - GLAUCOMA [None]
  - HYPERTENSIVE CRISIS [None]
